FAERS Safety Report 14317028 (Version 1)
Quarter: 2017Q4

REPORT INFORMATION
  Report Type: Spontaneous
  Country: TR (occurrence: TR)
  Receive Date: 20171222
  Receipt Date: 20171222
  Transmission Date: 20180321
  Serious: Yes (Death, Other)
  Sender: FDA-Public Use
  Company Number: TR-ASTELLAS-2017US055095

PATIENT
  Age: 56 Year
  Sex: Male

DRUGS (4)
  1. TEICOPLANIN [Suspect]
     Active Substance: TEICOPLANIN
     Indication: PYREXIA
     Dosage: 400 MG, TWICE DAILY (2 X 400 MG, LOADING DOSE)
     Route: 042
  2. TACROLIMUS. [Suspect]
     Active Substance: TACROLIMUS
     Indication: LIVER TRANSPLANT
     Route: 065
  3. TEICOPLANIN [Suspect]
     Active Substance: TEICOPLANIN
     Route: 042
  4. URSODEOXYCHOLIC ACID [Concomitant]
     Active Substance: URSODIOL
     Indication: LIVER TRANSPLANT
     Route: 065

REACTIONS (7)
  - Cerebral ischaemia [Unknown]
  - Metabolic acidosis [Unknown]
  - Hepatic failure [Unknown]
  - Generalised tonic-clonic seizure [Recovered/Resolved]
  - Pneumonia [Fatal]
  - Hyponatraemia [Unknown]
  - Cholangitis [Unknown]
